FAERS Safety Report 13689550 (Version 1)
Quarter: 2017Q2

REPORT INFORMATION
  Report Type: Spontaneous
  Country: HU (occurrence: HU)
  Receive Date: 20170626
  Receipt Date: 20170626
  Transmission Date: 20170830
  Serious: Yes (Life-Threatening)
  Sender: FDA-Public Use
  Company Number: PHHY2017HU088911

PATIENT
  Age: 63 Year
  Sex: Male

DRUGS (1)
  1. MOMETASONE SANDOZ [Suspect]
     Active Substance: MOMETASONE
     Indication: NASAL CONGESTION
     Dosage: 100 UG, QD
     Route: 045

REACTIONS (7)
  - Laryngitis [Unknown]
  - Tracheitis [Unknown]
  - Pharyngitis [Unknown]
  - Mucosal toxicity [Unknown]
  - Epistaxis [Unknown]
  - Nasal ulcer [Unknown]
  - Mucosal dryness [Unknown]

NARRATIVE: CASE EVENT DATE: 2016
